FAERS Safety Report 4374321-5 (Version None)
Quarter: 2004Q2

REPORT INFORMATION
  Report Type: 
  Country: None (occurrence: None)
  Receive Date: 20040604
  Receipt Date: 20040524
  Transmission Date: 20050107
  Serious: Yes (Hospitalization, Other)
  Sender: FDA-Public Use
  Company Number: 2004RL000053

PATIENT
  Age: 37 Year
  Sex: Female

DRUGS (1)
  1. PROPAFENONE HCL [Suspect]
     Indication: SUPRAVENTRICULAR TACHYCARDIA
     Dosage: 300 MG; X1; PO   : 600 MG; X1; PO
     Route: 048

REACTIONS (25)
  - ABDOMINAL PAIN [None]
  - ATRIOVENTRICULAR BLOCK FIRST DEGREE [None]
  - BUNDLE BRANCH BLOCK RIGHT [None]
  - CARDIOMEGALY [None]
  - COLD SWEAT [None]
  - CONGENITAL ATRIAL SEPTAL DEFECT [None]
  - CONVULSION [None]
  - CYANOSIS [None]
  - DIZZINESS [None]
  - ELECTROCARDIOGRAM QRS COMPLEX PROLONGED [None]
  - ELECTROCARDIOGRAM QT PROLONGED [None]
  - ELECTROCARDIOGRAM REPOLARISATION ABNORMALITY [None]
  - FATIGUE [None]
  - HYPOTENSION [None]
  - HYPOXIA [None]
  - MITRAL VALVE INCOMPETENCE [None]
  - MITRAL VALVE PROLAPSE [None]
  - NAUSEA [None]
  - OVERDOSE [None]
  - PALLOR [None]
  - PLATYPNOEA [None]
  - TRICUSPID VALVE INCOMPETENCE [None]
  - VENOUS PRESSURE JUGULAR INCREASED [None]
  - VENTRICULAR DYSKINESIA [None]
  - VOMITING [None]
